FAERS Safety Report 8199284-6 (Version None)
Quarter: 2012Q1

REPORT INFORMATION
  Report Type: 
  Country: None (occurrence: None)
  Receive Date: 20120309
  Receipt Date: 20120301
  Transmission Date: 20120608
  Serious: Yes (Disabling)
  Sender: FDA-Public Use
  Company Number: GB-JNJFOC-20120300922

PATIENT
  Age: 58 Year
  Sex: Female

DRUGS (2)
  1. STELARA [Suspect]
     Indication: PSORIASIS
     Route: 058
     Dates: start: 20110831, end: 20120215
  2. FLUCLOXACILLIN [Concomitant]
     Indication: INFECTION
     Route: 048
     Dates: start: 20110901, end: 20110916

REACTIONS (3)
  - PAIN [None]
  - MYALGIA [None]
  - HEADACHE [None]
